FAERS Safety Report 12491310 (Version 2)
Quarter: 2016Q3

REPORT INFORMATION
  Report Type: Spontaneous
  Country: FR (occurrence: FR)
  Receive Date: 20160623
  Receipt Date: 20160921
  Transmission Date: 20161109
  Serious: Yes (Life-Threatening, Hospitalization)
  Sender: FDA-Public Use
  Company Number: FR-ACCORD-041788

PATIENT
  Age: 60 Year
  Sex: Male

DRUGS (3)
  1. OXALIPLATIN HOSPIRA [Suspect]
     Active Substance: OXALIPLATIN
     Indication: COLORECTAL ADENOCARCINOMA
     Route: 042
     Dates: start: 20151008
  2. FLUOROURACIL ACCORD [Suspect]
     Active Substance: FLUOROURACIL
     Indication: COLORECTAL ADENOCARCINOMA
     Dosage: AT THE POSOLOGY OF 400 MG/M2 AS BOLUS DOSE AND 2400 MG/M2 VIA CASSETTE DOSING
     Route: 042
     Dates: start: 20151008, end: 20160523
  3. ERBITUX [Suspect]
     Active Substance: CETUXIMAB
     Indication: COLORECTAL ADENOCARCINOMA
     Dosage: ONE COURSE OF TREATMENT EVERY 15 DAYS
     Route: 042
     Dates: start: 20151102, end: 20160523

REACTIONS (2)
  - Pulmonary embolism [Unknown]
  - Interstitial lung disease [Recovered/Resolved with Sequelae]

NARRATIVE: CASE EVENT DATE: 20160523
